FAERS Safety Report 4978564-9 (Version None)
Quarter: 2006Q2

REPORT INFORMATION
  Report Type: 
  Country: None (occurrence: None)
  Receive Date: 20060414
  Receipt Date: 20060406
  Transmission Date: 20061013
  Serious: Yes (Life-Threatening)
  Sender: FDA-Public Use
  Company Number: 200610352BYL

PATIENT
  Age: 60 Year
  Sex: Male

DRUGS (1)
  1. CIPROFLOXACIN [Suspect]
     Indication: PYELONEPHRITIS ACUTE
     Dosage: 300 MG, BID, INTRAVENOUS DRIP
     Route: 041
     Dates: start: 20060304, end: 20060307

REACTIONS (6)
  - HYPERCAPNIA [None]
  - LUNG INFECTION PSEUDOMONAL [None]
  - MULTI-ORGAN FAILURE [None]
  - NEUROLEPTIC MALIGNANT SYNDROME [None]
  - PNEUMONIA STAPHYLOCOCCAL [None]
  - RESPIRATORY FAILURE [None]
